FAERS Safety Report 12548436 (Version 1)
Quarter: 2016Q3

REPORT INFORMATION
  Report Type: Spontaneous
  Country: FR (occurrence: FR)
  Receive Date: 20160712
  Receipt Date: 20160712
  Transmission Date: 20161109
  Serious: Yes (Hospitalization)
  Sender: FDA-Public Use
  Company Number: FR-AUROBINDO-AUR-APL-2016-08794

PATIENT
  Age: 76 Year
  Sex: Male

DRUGS (1)
  1. PREDNISONE. [Suspect]
     Active Substance: PREDNISONE
     Indication: PRODUCT USED FOR UNKNOWN INDICATION
     Dosage: 40 MG, DAILY
     Route: 065

REACTIONS (6)
  - Visual acuity reduced [Recovered/Resolved]
  - Lipomatosis [Recovered/Resolved]
  - Periorbital fat herniation [Recovered/Resolved]
  - Eye pain [Recovered/Resolved]
  - Visual evoked potentials abnormal [Recovered/Resolved]
  - Exophthalmos [Recovered/Resolved]
